FAERS Safety Report 19883964 (Version 2)
Quarter: 2021Q4

REPORT INFORMATION
  Report Type: Report from Study
  Country: US (occurrence: US)
  Receive Date: 20210927
  Receipt Date: 20211020
  Transmission Date: 20220303
  Serious: Yes (Other)
  Sender: FDA-Public Use
  Company Number: NVSC2021US218024

PATIENT
  Age: 64 Year
  Sex: Female
  Weight: 45.4 kg

DRUGS (1)
  1. LAMPRENE [Suspect]
     Active Substance: CLOFAZIMINE
     Indication: Mycobacterium avium complex infection
     Dosage: 100 MG
     Route: 048
     Dates: start: 20210511, end: 20210722

REACTIONS (2)
  - Electrocardiogram QT prolonged [Recovered/Resolved]
  - Tongue paralysis [Recovered/Resolved]

NARRATIVE: CASE EVENT DATE: 20210722
